FAERS Safety Report 8844683 (Version 1)
Quarter: 2012Q4

REPORT INFORMATION
  Report Type: 
  Country: NL (occurrence: NL)
  Receive Date: 20121017
  Receipt Date: 20121017
  Transmission Date: 20130627
  Serious: Yes (Death, Hospitalization)
  Sender: FDA-Public Use
  Company Number: NL-JNJFOC-NSADSS2001003116

PATIENT
  Age: 81 Year
  Sex: Male
  Weight: 70 kg

DRUGS (5)
  1. REMICADE [Suspect]
     Route: 041
  2. REMICADE [Suspect]
     Indication: RHEUMATOID ARTHRITIS
     Route: 041
     Dates: start: 20010112, end: 20010112
  3. NAPROXENUM [Concomitant]
     Indication: RHEUMATOID ARTHRITIS
     Route: 065
     Dates: start: 1984
  4. LANOXIN [Concomitant]
     Indication: ATRIAL FIBRILLATION
     Route: 065
     Dates: start: 1984
  5. TEMAZEPAM [Concomitant]
     Indication: SLEEP DISORDER
     Route: 065
     Dates: start: 1984

REACTIONS (8)
  - Agranulocytosis [Fatal]
  - Pseudomonal sepsis [Fatal]
  - Pneumonia [Fatal]
  - Cardiac failure acute [Fatal]
  - Left ventricular hypertrophy [Fatal]
  - Coronary artery disease [Fatal]
  - Marrow hyperplasia [Fatal]
  - Oral candidiasis [Fatal]
